FAERS Safety Report 14710443 (Version 1)
Quarter: 2018Q2

REPORT INFORMATION
  Report Type: Spontaneous
  Country: US (occurrence: US)
  Receive Date: 20180403
  Receipt Date: 20180403
  Transmission Date: 20180711
  Serious: Yes (Hospitalization)
  Sender: FDA-Public Use
  Company Number: US-PFIZER INC-2018130603

PATIENT
  Age: 71 Year
  Sex: Male
  Weight: 79.83 kg

DRUGS (12)
  1. SODIUM [Concomitant]
     Active Substance: SODIUM
     Indication: BLOOD SODIUM DECREASED
     Dosage: 5 G, DAILY
     Route: 048
     Dates: start: 2012
  2. RANEXA [Concomitant]
     Active Substance: RANOLAZINE
     Indication: ANGINA PECTORIS
     Dosage: 500 MG, DAILY
     Route: 048
  3. FUROSEMIDE. [Concomitant]
     Active Substance: FUROSEMIDE
     Indication: ELECTROLYTE IMBALANCE
     Dosage: 20MG TABLETS. 2 TABLETS BY MOUTH DAILY
     Route: 048
     Dates: start: 2012
  4. DEPAKOTE [Concomitant]
     Active Substance: DIVALPROEX SODIUM
     Indication: BIPOLAR DISORDER
     Dosage: 500 MG, UNK
     Route: 048
     Dates: start: 1988
  5. XARELTO [Concomitant]
     Active Substance: RIVAROXABAN
     Indication: BLOOD DISORDER
     Dosage: 10 MG, 1X/DAY
     Route: 048
     Dates: start: 2017
  6. RISPERIDONE. [Concomitant]
     Active Substance: RISPERIDONE
     Indication: PSYCHOTIC DISORDER
     Dosage: 2MG TABLETS. 2 TABLETS BY MOUTH DAILY
     Route: 048
     Dates: start: 1998
  7. LYRICA [Suspect]
     Active Substance: PREGABALIN
     Indication: NERVE INJURY
     Dosage: 50 MG, UNK
  8. LYRICA [Suspect]
     Active Substance: PREGABALIN
     Dosage: 75 MG, 3X/DAY
     Route: 048
     Dates: start: 2016
  9. METOPROLOL. [Concomitant]
     Active Substance: METOPROLOL
     Indication: BLOOD PRESSURE ABNORMAL
     Dosage: 25 MG, 1X/DAY
     Route: 048
     Dates: start: 2008
  10. LORATADINE. [Concomitant]
     Active Substance: LORATADINE
     Indication: HYPERSENSITIVITY
     Dosage: 10 MG, 1X/DAY
     Route: 048
     Dates: start: 2016
  11. ASPIRIN. [Concomitant]
     Active Substance: ASPIRIN
     Indication: THROMBOSIS PROPHYLAXIS
     Dosage: 81 MG, 1X/DAY
     Route: 048
     Dates: start: 2008
  12. BENADRYL [Concomitant]
     Active Substance: DIPHENHYDRAMINE HYDROCHLORIDE
     Indication: SLEEP DISORDER
     Dosage: 50 MG, 1X/DAY (25MG TABLETS. 2 TABLETS BY MOUTH AT NIGHT)
     Route: 048
     Dates: start: 1998

REACTIONS (5)
  - Cardiovascular disorder [Recovering/Resolving]
  - Pain in extremity [Recovering/Resolving]
  - Impaired healing [Recovering/Resolving]
  - Product use in unapproved indication [Unknown]
  - Skin lesion [Recovering/Resolving]
